FAERS Safety Report 7555601-9 (Version None)
Quarter: 2011Q2

REPORT INFORMATION
  Report Type: 
  Country: None (occurrence: None)
  Receive Date: 20110617
  Receipt Date: 20010510
  Transmission Date: 20111010
  Serious: Yes (Hospitalization)
  Sender: FDA-Public Use
  Company Number: PHEH2001US04256

PATIENT
  Sex: Male

DRUGS (6)
  1. PLAVIX [Concomitant]
  2. ASPIRIN [Concomitant]
  3. EXELON [Suspect]
     Dosage: 1.5 MG, BID
     Dates: start: 20001024
  4. ELDEPRYL [Concomitant]
     Dosage: UNK, UNK
  5. LACTULOSE [Concomitant]
  6. SINEMET [Concomitant]

REACTIONS (1)
  - TRANSIENT ISCHAEMIC ATTACK [None]
